FAERS Safety Report 5339577-0 (Version None)
Quarter: 2007Q2

REPORT INFORMATION
  Report Type: 
  Country: None (occurrence: None)
  Receive Date: 20070525
  Receipt Date: 20070514
  Transmission Date: 20071010
  Serious: Yes (Hospitalization)
  Sender: FDA-Public Use
  Company Number: 2007050054

PATIENT
  Age: 57 Year
  Sex: Female

DRUGS (11)
  1. SOMA (CARISOPRODOL, USP) 350MG [Suspect]
     Dosage: 87 TABLETS (350 MG TABLETS), ORAL
     Route: 048
     Dates: start: 20030601, end: 20030601
  2. MOTRIN [Suspect]
     Dosage: 71 TABLETS (800 MG TABLETS), ORAL
     Route: 048
     Dates: start: 20030601, end: 20030601
  3. BUSPAR [Suspect]
     Dosage: 33 TABLETS (5 MG TABLETS), ORAL
     Route: 048
     Dates: start: 20030601, end: 20030601
  4. ULTRAM [Suspect]
     Dosage: 100 TABLETS, ORAL
     Route: 048
     Dates: start: 20030601, end: 20030601
  5. LORAZEPAM [Suspect]
     Dosage: 28 TABLETS (30MG TABLETS), ORAL
     Route: 048
     Dates: start: 20030601, end: 20030601
  6. CLARITIN [Concomitant]
  7. NEURONTIN [Concomitant]
  8. CELEXA [Concomitant]
  9. PHENAZOPYRIDINE HCL TAB [Concomitant]
  10. DALMANE [Concomitant]
  11. POTASSIUM CHLORIDE [Concomitant]

REACTIONS (20)
  - AGGRESSION [None]
  - APNOEA [None]
  - BLOOD CHLORIDE INCREASED [None]
  - BLOOD GLUCOSE INCREASED [None]
  - BLOOD PRESSURE SYSTOLIC INCREASED [None]
  - BLOOD UREA INCREASED [None]
  - CONVULSION [None]
  - CYANOSIS [None]
  - FOAMING AT MOUTH [None]
  - HAEMOPHILUS INFECTION [None]
  - HEART RATE INCREASED [None]
  - MITRAL VALVE INCOMPETENCE [None]
  - MULTIPLE DRUG OVERDOSE [None]
  - PNEUMONIA ASPIRATION [None]
  - SOMNOLENCE [None]
  - SPUTUM CULTURE POSITIVE [None]
  - STREPTOCOCCAL INFECTION [None]
  - TRICUSPID VALVE INCOMPETENCE [None]
  - TROPONIN INCREASED [None]
  - UNRESPONSIVE TO STIMULI [None]
